FAERS Safety Report 9190954 (Version 2)
Quarter: 2013Q2

REPORT INFORMATION
  Report Type: Spontaneous
  Country: US (occurrence: US)
  Receive Date: 20130326
  Receipt Date: 20130612
  Transmission Date: 20140414
  Serious: Yes (Hospitalization)
  Sender: FDA-Public Use
  Company Number: US-GILEAD-2013-0072258

PATIENT
  Age: 21 Year
  Sex: Female

DRUGS (4)
  1. LETAIRIS [Suspect]
     Indication: PULMONARY HYPERTENSION
     Dosage: 5 MG, QD
     Route: 048
     Dates: start: 20090202
  2. LETAIRIS [Suspect]
     Indication: PULMONARY ARTERY DILATATION
  3. VENTAVIS [Concomitant]
  4. REVATIO [Concomitant]

REACTIONS (2)
  - Chest pain [Unknown]
  - Syncope [Unknown]
